FAERS Safety Report 5241141-9 (Version None)
Quarter: 2007Q1

REPORT INFORMATION
  Report Type: 
  Country: None (occurrence: None)
  Receive Date: 20070220
  Receipt Date: 20070207
  Transmission Date: 20070707
  Serious: Yes (Hospitalization)
  Sender: FDA-Public Use
  Company Number: CA-JNJFOC-20060502100

PATIENT
  Sex: Female

DRUGS (2)
  1. REMICADE [Suspect]
     Route: 042
  2. REMICADE [Suspect]
     Indication: RHEUMATOID ARTHRITIS
     Dosage: 52 INFUSIONS ON UNKNOWN DATES
     Route: 042

REACTIONS (3)
  - COLLAPSE OF LUNG [None]
  - INCISION SITE COMPLICATION [None]
  - PNEUMONIA [None]
